FAERS Safety Report 14670086 (Version 1)
Quarter: 2018Q1

REPORT INFORMATION
  Report Type: Spontaneous
  Country: CA (occurrence: CA)
  Receive Date: 20180322
  Receipt Date: 20180322
  Transmission Date: 20180509
  Serious: Yes (Disabling)
  Sender: FDA-Public Use
  Company Number: CA-BAYER-2018-051715

PATIENT
  Age: 38 Year
  Sex: Female
  Weight: 36 kg

DRUGS (2)
  1. MIRENA [Suspect]
     Active Substance: LEVONORGESTREL
     Dosage: 20 MCG/24HR, CONT
     Route: 015
  2. MIRENA [Suspect]
     Active Substance: LEVONORGESTREL

REACTIONS (9)
  - Anxiety [Recovering/Resolving]
  - Depressive symptom [Recovering/Resolving]
  - Intentional medical device removal by patient [Recovering/Resolving]
  - Panic attack [Recovering/Resolving]
  - Major depression [Recovering/Resolving]
  - Impaired work ability [Recovering/Resolving]
  - Aggression [Recovering/Resolving]
  - Hypomania [Recovering/Resolving]
  - Irritability [Recovering/Resolving]
